FAERS Safety Report 15544131 (Version 2)
Quarter: 2018Q4

REPORT INFORMATION
  Report Type: Spontaneous
  Country: US (occurrence: US)
  Receive Date: 20181024
  Receipt Date: 20181027
  Transmission Date: 20190205
  Serious: Yes (Other)
  Sender: FDA-Public Use
  Company Number: US-ABBVIE-18K-163-2526377-00

PATIENT
  Sex: Male
  Weight: 73.28 kg

DRUGS (2)
  1. HUMIRA [Suspect]
     Active Substance: ADALIMUMAB
     Indication: PSORIASIS
     Route: 058
     Dates: start: 20180711, end: 20180927
  2. TRIAMCINOLONE [Concomitant]
     Active Substance: TRIAMCINOLONE
     Indication: PSORIASIS

REACTIONS (4)
  - White blood cell count increased [Unknown]
  - Mycosis fungoides [Not Recovered/Not Resolved]
  - Drug eruption [Unknown]
  - T-lymphocyte count increased [Unknown]

NARRATIVE: CASE EVENT DATE: 2018
